FAERS Safety Report 6550467-8 (Version None)
Quarter: 2010Q1

REPORT INFORMATION
  Report Type: 
  Country: None (occurrence: None)
  Receive Date: 20100125
  Receipt Date: 20100117
  Transmission Date: 20100710
  Serious: Yes (Other)
  Sender: FDA-Public Use
  Company Number: A0835018A

PATIENT
  Sex: Male

DRUGS (3)
  1. ADVAIR [Suspect]
     Indication: CHRONIC OBSTRUCTIVE PULMONARY DISEASE
     Dosage: 4PUFF PER DAY
     Route: 055
     Dates: start: 20091124
  2. ATROVENT [Concomitant]
     Indication: ASTHMA
     Route: 055
     Dates: start: 20070718
  3. VENTOLIN [Concomitant]
     Route: 055
     Dates: start: 20091210

REACTIONS (6)
  - DEVICE INEFFECTIVE [None]
  - DRUG INEFFECTIVE [None]
  - DYSPNOEA [None]
  - MOBILITY DECREASED [None]
  - PNEUMONIA [None]
  - PRODUCT QUALITY ISSUE [None]
